FAERS Safety Report 16261630 (Version 1)
Quarter: 2019Q2

REPORT INFORMATION
  Report Type: Spontaneous
  Country: US (occurrence: US)
  Receive Date: 20190501
  Receipt Date: 20190501
  Transmission Date: 20190711
  Serious: Yes (Other)
  Sender: FDA-Public Use
  Company Number: US-PFIZER INC-2019102720

PATIENT
  Age: 52 Year
  Sex: Male

DRUGS (2)
  1. LYRICA [Suspect]
     Active Substance: PREGABALIN
     Indication: FACIAL PAIN
     Dosage: 100 MG, 4X/DAY
     Route: 048
     Dates: start: 20190226
  2. LYRICA [Suspect]
     Active Substance: PREGABALIN
     Dosage: 100MG TO 6 TIMES A DAY

REACTIONS (6)
  - Cervical vertebral fracture [Unknown]
  - Quadriplegia [Unknown]
  - Facial bones fracture [Unknown]
  - Accident [Unknown]
  - Product use in unapproved indication [Unknown]
  - Off label use [Unknown]

NARRATIVE: CASE EVENT DATE: 20190226
